FAERS Safety Report 9745380 (Version 4)
Quarter: 2014Q1

REPORT INFORMATION
  Report Type: Spontaneous
  Country: US (occurrence: US)
  Receive Date: 20131211
  Receipt Date: 20140130
  Transmission Date: 20141002
  Serious: Yes (Other)
  Sender: FDA-Public Use
  Company Number: PHEH2013US025269

PATIENT
  Age: 79 Year
  Sex: Male

DRUGS (7)
  1. RECLAST [Suspect]
     Indication: OSTEOPOROSIS
     Dosage: 5 MG/100ML YEARLY
     Route: 042
     Dates: start: 20101210
  2. RECLAST [Suspect]
     Dosage: 5 MG/100ML YEARLY
     Route: 042
  3. RECLAST [Suspect]
     Dosage: 5 MG/100ML YEARLY
     Route: 042
  4. RECLAST [Suspect]
     Dosage: 5 MG/100ML YEARLY
     Route: 042
  5. RECLAST [Suspect]
     Dosage: 5 MG/100ML YEARLY
     Route: 042
  6. CALCIUM [Concomitant]
     Dosage: UNK UKN, UNK
  7. VITAMIN D [Concomitant]
     Dosage: UNK UKN, UNK

REACTIONS (2)
  - Osteoporosis [Not Recovered/Not Resolved]
  - Bone density decreased [Not Recovered/Not Resolved]
